FAERS Safety Report 12640915 (Version 1)
Quarter: 2016Q3

REPORT INFORMATION
  Report Type: Spontaneous
  Country: PL (occurrence: PL)
  Receive Date: 20160810
  Receipt Date: 20160810
  Transmission Date: 20161109
  Serious: Yes (Hospitalization, Other)
  Sender: FDA-Public Use
  Company Number: PL-GLAXOSMITHKLINE-PL2016GSK115717

PATIENT
  Age: 57 Year
  Sex: Female

DRUGS (1)
  1. LANSOPRAZOLE. [Suspect]
     Active Substance: LANSOPRAZOLE
     Indication: DUODENITIS

REACTIONS (7)
  - Leukocyturia [Recovered/Resolved]
  - Fatigue [Recovered/Resolved]
  - Leukopenia [Recovered/Resolved]
  - Erythema annulare [Recovered/Resolved]
  - Rash erythematous [Recovered/Resolved]
  - Haematuria [Recovered/Resolved]
  - Subacute cutaneous lupus erythematosus [Recovered/Resolved]
